FAERS Safety Report 14357694 (Version 2)
Quarter: 2018Q1

REPORT INFORMATION
  Report Type: Spontaneous
  Country: DE (occurrence: DE)
  Receive Date: 20180105
  Receipt Date: 20180123
  Transmission Date: 20180509
  Serious: Yes (Other)
  Sender: FDA-Public Use
  Company Number: DE-BIOGEN-2017BV000487

PATIENT
  Age: 12 Month
  Sex: Male

DRUGS (1)
  1. ELOCTA [Suspect]
     Active Substance: EFMOROCTOCOG ALFA
     Indication: ACQUIRED HAEMOPHILIA
     Route: 042
     Dates: start: 201705

REACTIONS (1)
  - Factor VIII inhibition [Unknown]

NARRATIVE: CASE EVENT DATE: 20171026
